FAERS Safety Report 6535801-7 (Version None)
Quarter: 2010Q1

REPORT INFORMATION
  Report Type: 
  Country: None (occurrence: None)
  Receive Date: 20100105
  Receipt Date: 20091224
  Transmission Date: 20100710
  Serious: Yes (Death, Disabling)
  Sender: FDA-Public Use
  Company Number: OSCN-PR-0704S-0173

PATIENT
  Age: 30 Year
  Sex: Male

DRUGS (11)
  1. OMNISCAN [Suspect]
     Indication: DRUG USE FOR UNKNOWN INDICATION
     Dosage: NR, UNK
     Route: 045
     Dates: start: 20060101, end: 20060101
  2. METHOTREXATE [Concomitant]
  3. AMITRIPTYLINE HCL [Concomitant]
  4. TRIMEPRAZINE [Concomitant]
  5. PREDNISONE [Concomitant]
  6. ASPIRIN [Concomitant]
  7. DICLOFENAC SODIUM [Concomitant]
  8. QUININE [Concomitant]
  9. DOXERCALCIFEROL (HECTOROL) [Concomitant]
  10. PREVACID [Concomitant]
  11. HYDROMORPHONE [Concomitant]

REACTIONS (3)
  - NEPHROGENIC SYSTEMIC FIBROSIS [None]
  - OEDEMA PERIPHERAL [None]
  - PAIN [None]
